FAERS Safety Report 9365407 (Version 1)
Quarter: 2013Q2

REPORT INFORMATION
  Report Type: Spontaneous
  Country: US (occurrence: US)
  Receive Date: 20130625
  Receipt Date: 20130625
  Transmission Date: 20140414
  Serious: Yes (Other)
  Sender: FDA-Public Use
  Company Number: US-ROCHE-1223517

PATIENT
  Age: 61 Year
  Sex: Male

DRUGS (6)
  1. PEGASYS [Suspect]
     Indication: CHRONIC HEPATITIS C
     Route: 065
     Dates: start: 20130416
  2. RIBAPAK [Suspect]
     Indication: CHRONIC HEPATITIS C
     Route: 065
     Dates: start: 20130416
  3. TELAPREVIR [Suspect]
     Indication: CHRONIC HEPATITIS C
     Route: 065
     Dates: start: 20130523
  4. METFORMIN [Concomitant]
  5. LISINOPRIL [Concomitant]
  6. GLIPIZIDE [Concomitant]

REACTIONS (14)
  - Blood glucose fluctuation [Unknown]
  - Tinnitus [Unknown]
  - Headache [Unknown]
  - Dizziness [Unknown]
  - Asthenia [Unknown]
  - Vision blurred [Unknown]
  - Thirst [Not Recovered/Not Resolved]
  - Pollakiuria [Unknown]
  - Vomiting [Unknown]
  - Abdominal pain [Unknown]
  - Fatigue [Unknown]
  - Constipation [Unknown]
  - Heart rate increased [Unknown]
  - Haemoglobin decreased [Unknown]
